FAERS Safety Report 7498999-2 (Version None)
Quarter: 2011Q2

REPORT INFORMATION
  Report Type: 
  Country: None (occurrence: None)
  Receive Date: 20110524
  Receipt Date: 20100116
  Transmission Date: 20111010
  Serious: Yes (Death, Other)
  Sender: FDA-Public Use
  Company Number: US-BAYER-201011208NA

PATIENT
  Sex: Female

DRUGS (11)
  1. LABETALOL [Concomitant]
     Dosage: 100 MG, TID
     Route: 048
  2. EFFEXOR [Concomitant]
     Dosage: 150 MG, QD
     Route: 048
  3. CELLCEPT [Concomitant]
     Dosage: 50 MCG, QD
     Route: 048
  4. CLONIDINE [Concomitant]
     Dosage: 1 MG, BID
     Route: 048
  5. HUMULIN R [Concomitant]
     Dosage: 9 U, EVERY MORNING
     Route: 058
  6. FIORICET [Concomitant]
     Dosage: EVERY 6 HOURS AS NEEDED
     Route: 048
  7. AMITRIPTYLINE HCL [Concomitant]
     Dosage: 25 MG, IN EVENING
     Route: 048
  8. LORTAB [Concomitant]
     Dosage: 7.5 MG, AS NEEDED
     Route: 048
  9. TRASYLOL [Suspect]
     Indication: CORONARY ARTERY BYPASS
     Dates: start: 20070227
  10. PROGRAF [Concomitant]
     Dosage: 4 MG, QID
     Route: 048
  11. HUMULIN N [Concomitant]
     Dosage: 26 UNITS EVERY MORNING; 12 UNITS EVERY EVENING
     Route: 058

REACTIONS (14)
  - CARDIAC DISORDER [None]
  - ORGAN FAILURE [None]
  - ANXIETY [None]
  - INJURY [None]
  - DEPRESSION [None]
  - RENAL INJURY [None]
  - PAIN [None]
  - FEAR [None]
  - RENAL FAILURE [None]
  - RENAL IMPAIRMENT [None]
  - DEATH [None]
  - CEREBROVASCULAR ACCIDENT [None]
  - UNEVALUABLE EVENT [None]
  - ANHEDONIA [None]
